FAERS Safety Report 7941386-0 (Version None)
Quarter: 2011Q4

REPORT INFORMATION
  Report Type: 
  Country: None (occurrence: None)
  Receive Date: 20111122
  Receipt Date: 20111122
  Transmission Date: 20120403
  Serious: No
  Sender: FDA-Public Use
  Company Number: None

PATIENT
  Age: 68 Year
  Sex: Female
  Weight: 52.1637 kg

DRUGS (2)
  1. PERPHENAZINE AND AMITRIPTYLINE HCL [Suspect]
     Indication: DEPRESSION
     Dosage: 2 X 25 MG 2 X DAY
     Dates: start: 20111105
  2. PERPHENAZINE AND AMITRIPTYLINE HCL [Suspect]
     Indication: ANXIETY
     Dosage: 2 X 25 MG 2 X DAY
     Dates: start: 20111105

REACTIONS (3)
  - TREMOR [None]
  - DYSKINESIA [None]
  - DRUG INEFFECTIVE [None]
